FAERS Safety Report 25220520 (Version 1)
Quarter: 2025Q2

REPORT INFORMATION
  Report Type: Spontaneous
  Country: AU (occurrence: AU)
  Receive Date: 20250421
  Receipt Date: 20250421
  Transmission Date: 20250716
  Serious: Yes (Hospitalization, Other)
  Sender: AMGEN
  Company Number: AU-AMGEN-AUSSP2025074691

PATIENT
  Age: 77 Year
  Sex: Male

DRUGS (3)
  1. BEVACIZUMAB [Suspect]
     Active Substance: BEVACIZUMAB
     Indication: Hepatocellular carcinoma
     Route: 065
  2. ATEZOLIZUMAB [Suspect]
     Active Substance: ATEZOLIZUMAB
     Indication: Hepatocellular carcinoma
     Route: 065
  3. ALLOPURINOL [Concomitant]
     Active Substance: ALLOPURINOL

REACTIONS (14)
  - Cognitive disorder [Unknown]
  - Confusional state [Unknown]
  - Constipation [Unknown]
  - Fall [Unknown]
  - Insomnia [Unknown]
  - Irritability [Unknown]
  - Memory impairment [Unknown]
  - Mobility decreased [Unknown]
  - Muscle contractions involuntary [Unknown]
  - Personality change [Unknown]
  - Scleroderma [Unknown]
  - Morvan syndrome [Unknown]
  - Neuromyotonia [Unknown]
  - Patient elopement [Unknown]
